FAERS Safety Report 7879193 (Version 8)
Quarter: 2013Q3

REPORT INFORMATION
  Report Type: Report from Study
  Country: RU (occurrence: RU)
  Receive Date: 20110330
  Receipt Date: 20130712
  Transmission Date: 20140515
  Serious: Yes (Hospitalization)
  Sender: FDA-Public Use
  Company Number: RU-BRISTOL-MYERS SQUIBB COMPANY-15548027

PATIENT
  Age: 64 Year
  Sex: Female
  Weight: 106 kg

DRUGS (10)
  1. METFORMIN HCL [Suspect]
     Indication: TYPE 2 DIABETES MELLITUS
  2. PLACEBO [Suspect]
     Indication: TYPE 2 DIABETES MELLITUS
     Dosage: INTERRUPTED
     Dates: start: 20110128
  3. CELEBREX [Suspect]
  4. THIOCTACID [Suspect]
     Indication: OSTEOCHONDROSIS
     Route: 048
     Dates: start: 20110304, end: 20110316
  5. DEXONA [Suspect]
     Indication: URTICARIA
     Dosage: 09FEB TO 24FEB2011;17MAR TO 22MAR2011;12-20MAR(12MG)MAR(8MG)22MAR(4MG)
     Route: 042
     Dates: start: 20110209, end: 20110322
  6. ASPIRIN [Concomitant]
     Dosage: 1 DF ={ 100MG
     Dates: start: 20110125
  7. BERODUAL [Concomitant]
     Dosage: 1 DF = 6UNITS
     Dates: start: 20110209, end: 20110225
  8. LASOLVAN [Concomitant]
     Dosage: 1 DF = 6 UNITS
     Dates: start: 20110209, end: 20110221
  9. DIMEDROLUM [Concomitant]
     Indication: URTICARIA
     Route: 030
     Dates: start: 20110317, end: 20110321
  10. MEBHYDROLIN [Concomitant]
     Indication: URTICARIA
     Route: 048
     Dates: start: 20110317, end: 20110329

REACTIONS (4)
  - Asthma [Recovered/Resolved]
  - Face oedema [Recovered/Resolved]
  - Urticaria [Recovered/Resolved]
  - Pancreatitis chronic [Recovered/Resolved]
